FAERS Safety Report 24169200 (Version 3)
Quarter: 2024Q3

REPORT INFORMATION
  Report Type: Spontaneous
  Country: US (occurrence: US)
  Receive Date: 20240802
  Receipt Date: 20240823
  Transmission Date: 20241016
  Serious: Yes (Other)
  Sender: PFIZER
  Company Number: US-PFIZER INC-202400226931

PATIENT
  Sex: Male

DRUGS (3)
  1. PAXLOVID [Suspect]
     Active Substance: NIRMATRELVIR\RITONAVIR
     Indication: COVID-19 treatment
     Dosage: UNK
     Dates: start: 20240708
  2. CIALIS [Suspect]
     Active Substance: TADALAFIL
     Indication: Hypertension
     Dosage: 5 MG
  3. CIALIS [Suspect]
     Active Substance: TADALAFIL
     Indication: Pulmonary hypertension

REACTIONS (4)
  - Syncope [Unknown]
  - Loss of consciousness [Unknown]
  - Dizziness [Unknown]
  - Hypotension [Not Recovered/Not Resolved]

NARRATIVE: CASE EVENT DATE: 20240701
